FAERS Safety Report 16171896 (Version 1)
Quarter: 2019Q2

REPORT INFORMATION
  Report Type: Spontaneous
  Country: JP (occurrence: JP)
  Receive Date: 20190408
  Receipt Date: 20190408
  Transmission Date: 20190711
  Serious: Yes (Other)
  Sender: FDA-Public Use
  Company Number: JP-JNJFOC-20190411610

PATIENT
  Age: 81 Year
  Sex: Male

DRUGS (2)
  1. RIUP [Suspect]
     Active Substance: MINOXIDIL
     Route: 065
  2. RIUP [Suspect]
     Active Substance: MINOXIDIL
     Indication: ANDROGENETIC ALOPECIA
     Route: 065

REACTIONS (1)
  - Coronary artery thrombosis [Unknown]
